FAERS Safety Report 7834304-7 (Version None)
Quarter: 2011Q4

REPORT INFORMATION
  Report Type: 
  Country: None (occurrence: None)
  Receive Date: 20111024
  Receipt Date: 20111012
  Transmission Date: 20120403
  Serious: Yes (Hospitalization)
  Sender: FDA-Public Use
  Company Number: US-EISAI INC-E7389-01413-CLI-US

PATIENT
  Sex: Female
  Weight: 48 kg

DRUGS (3)
  1. EPIRUBICIN HYDROCHLORIDE [Suspect]
     Indication: BREAST CANCER
     Dosage: UNKNOWN
     Route: 041
     Dates: start: 20110713
  2. CYCLOPHOSPHAMIDE [Concomitant]
     Indication: BREAST CANCER
     Route: 041
     Dates: start: 20110713, end: 20110809
  3. DOXORUBICIN HCL [Concomitant]
     Indication: BREAST CANCER
     Dates: start: 20110713, end: 20110809

REACTIONS (6)
  - OESOPHAGITIS [None]
  - FEBRILE NEUTROPENIA [None]
  - VOMITING [None]
  - NAUSEA [None]
  - WEIGHT DECREASED [None]
  - HERPES SIMPLEX [None]
